FAERS Safety Report 21873067 (Version 1)
Quarter: 2023Q1

REPORT INFORMATION
  Report Type: Spontaneous
  Country: US (occurrence: None)
  Receive Date: 20230115
  Receipt Date: 20230115
  Transmission Date: 20230418
  Serious: Yes (Other)
  Sender: FDA-Public Use
  Company Number: None

PATIENT
  Age: 63 Year
  Sex: Female
  Weight: 64.35 kg

DRUGS (16)
  1. TALTZ [Suspect]
     Active Substance: IXEKIZUMAB
     Indication: Psoriasis
     Route: 058
     Dates: start: 20221221, end: 20221221
  2. PREDNISONE [Concomitant]
     Active Substance: PREDNISONE
  3. LISINOPRIL [Concomitant]
     Active Substance: LISINOPRIL
  4. SYNTHROID [Concomitant]
     Active Substance: LEVOTHYROXINE SODIUM
  5. CYTOMEL [Concomitant]
     Active Substance: LIOTHYRONINE SODIUM
  6. RESTASIS [Concomitant]
     Active Substance: CYCLOSPORINE
  7. XIIDRA [Concomitant]
     Active Substance: LIFITEGRAST
  8. ESTRADIOL [Concomitant]
     Active Substance: ESTRADIOL
  9. FLUTICASONE [Concomitant]
     Active Substance: FLUTICASONE
  10. RETIN-A [Concomitant]
     Active Substance: TRETINOIN
  11. DOXYCYCLINE [Concomitant]
     Active Substance: DOXYCYCLINE
  12. ENSTILAR [Concomitant]
     Active Substance: BETAMETHASONE DIPROPIONATE\CALCIPOTRIENE HYDRATE
  13. CALCIUM [Concomitant]
     Active Substance: CALCIUM
  14. VITAMIN C [Concomitant]
     Active Substance: ASCORBIC ACID
  15. VITAMIN D3 [Concomitant]
     Active Substance: CHOLECALCIFEROL
  16. FISH OIL [Concomitant]
     Active Substance: FISH OIL

REACTIONS (1)
  - Urticaria [None]

NARRATIVE: CASE EVENT DATE: 20230102
